FAERS Safety Report 9406550 (Version 1)
Quarter: 2013Q3

REPORT INFORMATION
  Report Type: Spontaneous
  Country: DE (occurrence: DE)
  Receive Date: 20130718
  Receipt Date: 20130718
  Transmission Date: 20140515
  Serious: Yes (Death, Hospitalization)
  Sender: FDA-Public Use
  Company Number: DE-ROCHE-1249240

PATIENT
  Age: 37 Year
  Sex: Female

DRUGS (2)
  1. SAQUINAVIR [Suspect]
     Indication: HIV INFECTION
     Route: 065
  2. LOPINAVIR/RITONAVIR [Suspect]
     Indication: HIV INFECTION
     Dosage: 800 MG/200 MG PER DAY
     Route: 065

REACTIONS (1)
  - Leukoencephalopathy [Fatal]
